FAERS Safety Report 5130461-4 (Version None)
Quarter: 2006Q4

REPORT INFORMATION
  Report Type: 
  Country: None (occurrence: None)
  Receive Date: 20061019
  Receipt Date: 20050221
  Transmission Date: 20070319
  Serious: Yes (Death, Hospitalization)
  Sender: FDA-Public Use
  Company Number: CA-BRISTOL-MYERS SQUIBB COMPANY-12870960

PATIENT
  Age: 65 Year
  Sex: Male
  Weight: 115 kg

DRUGS (5)
  1. CETUXIMAB [Suspect]
     Indication: COLORECTAL CANCER METASTATIC
     Route: 042
     Dates: start: 20041110, end: 20050126
  2. METOPROLOL TARTRATE [Concomitant]
     Indication: HYPERTENSION
     Dates: start: 20020101
  3. ALTACE [Concomitant]
     Indication: HYPERTENSION
     Dates: start: 20020101
  4. ZOPICLONE [Concomitant]
     Indication: SEDATION
     Dates: start: 20040101
  5. POLYSPORIN [Concomitant]
     Indication: RASH
     Route: 061
     Dates: start: 20050201

REACTIONS (7)
  - ASTHENIA [None]
  - DYSPNOEA [None]
  - HAEMOGLOBIN DECREASED [None]
  - HYPOALBUMINAEMIA [None]
  - HYPOCALCAEMIA [None]
  - HYPOMAGNESAEMIA [None]
  - MALIGNANT NEOPLASM PROGRESSION [None]
